FAERS Safety Report 18312193 (Version 1)
Quarter: 2020Q3

REPORT INFORMATION
  Report Type: Spontaneous
  Country: FR (occurrence: FR)
  Receive Date: 20200925
  Receipt Date: 20200925
  Transmission Date: 20201103
  Serious: Yes (Hospitalization)
  Sender: FDA-Public Use
  Company Number: FR-TEVA-2020-FR-1820920

PATIENT
  Age: 89 Year
  Sex: Male

DRUGS (7)
  1. DEPAMIDE 300 MG, COMPRIME PELLICULE GASTRO?RESISTANT [Interacting]
     Active Substance: VALPROMIDE
     Indication: WRONG PATIENT RECEIVED PRODUCT
     Dosage: 1 DOSAGE FORMS
     Route: 048
     Dates: start: 20200714, end: 20200714
  2. LOXAPAC 50 MG, COMPRIME PELLICULE [Interacting]
     Active Substance: LOXAPINE SUCCINATE
     Indication: WRONG PATIENT RECEIVED PRODUCT
     Dosage: 1 DOSAGE FORMS
     Route: 048
     Dates: start: 20200714, end: 20200714
  3. IXPRIM [Interacting]
     Active Substance: ACETAMINOPHEN\TRAMADOL HYDROCHLORIDE
     Indication: WRONG PATIENT RECEIVED PRODUCT
     Dosage: 1 DOSAGE FORMS
     Route: 048
     Dates: start: 20200714, end: 20200714
  4. ALPRAZOLAM. [Suspect]
     Active Substance: ALPRAZOLAM
     Indication: WRONG PATIENT RECEIVED PRODUCT
     Dosage: 0.25 MG
     Route: 048
     Dates: start: 20200714, end: 20200714
  5. XEROQUEL LP 50 MG, COMPRIME A LIBERATION PROLONGEE [Interacting]
     Active Substance: QUETIAPINE FUMARATE
     Indication: WRONG PATIENT RECEIVED PRODUCT
     Dosage: 2 DOSAGE FORMS
     Route: 048
     Dates: start: 20200714, end: 20200714
  6. MIANSERINE (CHLORHYDRATE DE) [Interacting]
     Active Substance: MIANSERIN HYDROCHLORIDE
     Indication: WRONG PATIENT RECEIVED PRODUCT
     Dosage: 30 MG
     Route: 048
     Dates: start: 20200714, end: 20200714
  7. PARKINANE L P 5 MG, GELULE A LIBERATION PROLONGEE [Concomitant]
     Active Substance: TRIHEXYPHENIDYL HYDROCHLORIDE
     Indication: WRONG PATIENT RECEIVED PRODUCT
     Dosage: 1 DOSAGE FORM
     Route: 048
     Dates: start: 20200714, end: 20200714

REACTIONS (4)
  - Altered state of consciousness [Recovered/Resolved]
  - Pneumonia aspiration [Recovering/Resolving]
  - Wrong patient received product [Recovered/Resolved]
  - Drug interaction [Recovered/Resolved]

NARRATIVE: CASE EVENT DATE: 20200714
